FAERS Safety Report 5560464-7 (Version None)
Quarter: 2007Q4

REPORT INFORMATION
  Report Type: 
  Country: None (occurrence: None)
  Receive Date: 20071215
  Receipt Date: 20071120
  Transmission Date: 20080405
  Serious: No
  Sender: FDA-Public Use
  Company Number: US-ABBOTT-07P-163-0424084-00

PATIENT
  Sex: Female
  Weight: 90.8 kg

DRUGS (2)
  1. HUMIRA [Suspect]
     Indication: RHEUMATOID ARTHRITIS
     Dosage: FROM THE VERY BEGINNING OF THERAPY
     Route: 048
     Dates: start: 20050201, end: 20070901
  2. HUMIRA [Suspect]
     Route: 058
     Dates: start: 20070901

REACTIONS (1)
  - PNEUMONIA [None]
